FAERS Safety Report 7000518-1 (Version None)
Quarter: 2010Q3

REPORT INFORMATION
  Report Type: 
  Country: None (occurrence: None)
  Receive Date: 20100920
  Receipt Date: 20070605
  Transmission Date: 20110219
  Serious: Yes (Other)
  Sender: FDA-Public Use
  Company Number: US-ASTRAZENECA-2006UW11894

PATIENT
  Sex: Female

DRUGS (17)
  1. SEROQUEL [Suspect]
     Indication: ANXIETY
     Route: 048
     Dates: start: 20000101
  2. SEROQUEL [Suspect]
     Indication: DEPRESSION
     Route: 048
     Dates: start: 20000101
  3. SEROQUEL [Suspect]
     Indication: BIPOLAR DISORDER
     Route: 048
     Dates: start: 20000101
  4. SEROQUEL [Suspect]
     Route: 048
     Dates: start: 20040105
  5. SEROQUEL [Suspect]
     Route: 048
     Dates: start: 20040105
  6. SEROQUEL [Suspect]
     Route: 048
     Dates: start: 20040105
  7. ZYPREXA [Suspect]
     Dates: start: 19980101
  8. RISPERDAL [Concomitant]
     Dosage: 3-10 MG
     Dates: start: 20020101
  9. LORTAB [Concomitant]
     Indication: PAIN
     Dosage: 5-7.5 MG Q 4 H PRN
     Dates: start: 20010525
  10. FLEXERIL [Concomitant]
     Dosage: 5-30 MG
     Dates: start: 20011108
  11. MOTRIN [Concomitant]
     Indication: PYREXIA
     Dosage: 1800-2400 MG
     Dates: start: 20010525
  12. MOTRIN [Concomitant]
     Indication: PAIN
     Dosage: 1800-2400 MG
     Dates: start: 20010525
  13. REMERON [Concomitant]
     Route: 048
     Dates: start: 20020101
  14. ALBUTEROL [Concomitant]
     Dosage: 2 PUFFS
     Dates: start: 20020101
  15. CELEBREX [Concomitant]
     Route: 048
     Dates: start: 20020221
  16. TYLENOL [Concomitant]
     Indication: PYREXIA
     Dosage: 100 MG AS NEEDED
     Dates: start: 20000504
  17. TYLENOL [Concomitant]
     Indication: PAIN
     Dosage: 100 MG AS NEEDED
     Dates: start: 20000504

REACTIONS (1)
  - TARDIVE DYSKINESIA [None]
